FAERS Safety Report 5713729-X (Version None)
Quarter: 2008Q2

REPORT INFORMATION
  Report Type: 
  Country: None (occurrence: None)
  Receive Date: 20080418
  Receipt Date: 20080407
  Transmission Date: 20081010
  Serious: Yes (Hospitalization)
  Sender: FDA-Public Use
  Company Number: GXKR2008CA03422

PATIENT
  Age: 49 Year
  Sex: Female

DRUGS (15)
  1. PAROXETINE HCL [Suspect]
     Indication: ANXIETY
     Dosage: 40 MG/DAY,
  2. FLUVOXAMINE MALEATE [Suspect]
     Indication: ANXIETY
  3. FENTANYL [Suspect]
     Indication: INDUCTION OF ANAESTHESIA
     Dosage: 5 UG/KG, BOLUSES,; INFUSION
  4. MEPERIDINE HYDROCHLORIDE [Suspect]
  5. METHYLENE BLUE (NGX)(METHYLENE BLUE) UNKNOWN [Suspect]
     Indication: HYPOTENSION
     Dosage: 1 MG/KG X 2 DOSES,
  6. CLONAZEPAM [Concomitant]
  7. SEROQUEL [Concomitant]
  8. DIAZEPAM [Concomitant]
  9. PROPOFOL [Concomitant]
  10. MIDAZOLAM HCL [Concomitant]
  11. ROCURONIUM BROMIDE [Concomitant]
  12. SEVOFLURANE [Concomitant]
  13. PHENYLEPHRINE (PHENYLEPHRINE) [Concomitant]
  14. VASOPRESSIN AND ANALOGUES (NO INGREDIENTS/SUBSTANCES) [Concomitant]
  15. NOREPINEPHRINE BITARTRATE [Concomitant]

REACTIONS (3)
  - DRUG INTERACTION [None]
  - SEROTONIN SYNDROME [None]
  - TOXIC ENCEPHALOPATHY [None]
